FAERS Safety Report 4994135-2 (Version None)
Quarter: 2006Q2

REPORT INFORMATION
  Report Type: 
  Country: None (occurrence: None)
  Receive Date: 20060503
  Receipt Date: 20060307
  Transmission Date: 20061013
  Serious: Yes (Hospitalization)
  Sender: FDA-Public Use
  Company Number: 224503

PATIENT
  Age: 42 Year
  Sex: Female

DRUGS (4)
  1. AVASTIN [Suspect]
     Indication: COLORECTAL CANCER
     Dosage: 600 MG, Q3W, INTRAVENOUS
     Route: 042
     Dates: start: 20051115
  2. OXALIPLATIN (OXALIPLATIN) [Suspect]
     Indication: COLORECTAL CANCER
     Dosage: 250 MG, Q3W, INTRAVENOUS
     Route: 042
     Dates: start: 20051115
  3. CAPECITABINE   (CAPECITABINE) [Suspect]
     Indication: COLORECTAL CANCER
     Dosage: 3600 MG, QD, ORAL
     Route: 048
     Dates: start: 20051115
  4. ERBITUX [Suspect]
     Indication: COLORECTAL CANCER
     Dosage: 480 MG, Q3W, INTRAVENOUS
     Route: 042
     Dates: start: 20051115

REACTIONS (2)
  - PLATELET COUNT DECREASED [None]
  - PYREXIA [None]
